FAERS Safety Report 20254859 (Version 1)
Quarter: 2021Q4

REPORT INFORMATION
  Report Type: Spontaneous
  Country: SE (occurrence: SE)
  Receive Date: 20211230
  Receipt Date: 20211230
  Transmission Date: 20220303
  Serious: Yes (Hospitalization)
  Sender: FDA-Public Use
  Company Number: None

PATIENT
  Age: 19 Year
  Sex: Female

DRUGS (1)
  1. QUETIAPINE [Suspect]
     Active Substance: QUETIAPINE
     Indication: Product used for unknown indication
     Dosage: UNK, INTOG 40 TABLETTER ??? 25 MG.
     Route: 065
     Dates: start: 20211214

REACTIONS (5)
  - Blood lactic acid increased [Recovering/Resolving]
  - Toxicity to various agents [Recovering/Resolving]
  - Hypokalaemia [Recovering/Resolving]
  - Intentional self-injury [Recovering/Resolving]
  - Tachycardia [Recovering/Resolving]

NARRATIVE: CASE EVENT DATE: 20211214
